FAERS Safety Report 5326116-3 (Version None)
Quarter: 2007Q2

REPORT INFORMATION
  Report Type: 
  Country: None (occurrence: None)
  Receive Date: 20070516
  Receipt Date: 20070511
  Transmission Date: 20071010
  Serious: Yes (Life-Threatening)
  Sender: FDA-Public Use
  Company Number: US-JNJFOC-20070503178

PATIENT
  Age: 79 Year
  Sex: Female
  Weight: 54.43 kg

DRUGS (6)
  1. INVEGA [Suspect]
     Indication: HALLUCINATION
     Route: 048
  2. INVEGA [Suspect]
     Indication: DELIRIUM
     Route: 048
  3. CYMBALTA [Concomitant]
  4. DETROL LA [Concomitant]
  5. BONIVA [Concomitant]
  6. AMITIZA [Concomitant]

REACTIONS (1)
  - DEEP VEIN THROMBOSIS [None]
